FAERS Safety Report 4384472-7 (Version None)
Quarter: 2004Q2

REPORT INFORMATION
  Report Type: 
  Country: None (occurrence: None)
  Receive Date: 20040624
  Receipt Date: 20040611
  Transmission Date: 20050107
  Serious: Yes (Hospitalization)
  Sender: FDA-Public Use
  Company Number: LV-MERCK-0406HUN00013

PATIENT
  Age: 29 Year
  Sex: Female
  Weight: 62 kg

DRUGS (5)
  1. CRIXIVAN [Suspect]
     Indication: ACQUIRED IMMUNODEFICIENCY SYNDROME
     Route: 048
     Dates: start: 20040521, end: 20040601
  2. ITRACONAZOLE [Suspect]
     Indication: CRYPTOCOCCOSIS
     Route: 048
     Dates: start: 20040521, end: 20040601
  3. LAMIVUDINE AND ZIDOVUDINE [Suspect]
     Indication: ACQUIRED IMMUNODEFICIENCY SYNDROME
     Route: 048
     Dates: start: 20040521, end: 20040602
  4. RITONAVIR [Suspect]
     Indication: ACQUIRED IMMUNODEFICIENCY SYNDROME
     Route: 065
     Dates: start: 20040521, end: 20040601
  5. SULFAMETHOXAZOLE AND TRIMETHOPRIM [Concomitant]
     Indication: INFECTION PROPHYLAXIS
     Route: 065
     Dates: start: 20040521

REACTIONS (2)
  - OEDEMA PERIPHERAL [None]
  - PURPURA [None]
